FAERS Safety Report 8554337-5 (Version None)
Quarter: 2012Q3

REPORT INFORMATION
  Report Type: 
  Country: None (occurrence: None)
  Receive Date: 20120731
  Receipt Date: 20120719
  Transmission Date: 20120928
  Serious: No
  Sender: FDA-Public Use
  Company Number: US-009507513-1207USA006605

PATIENT

DRUGS (1)
  1. NUVARING [Suspect]
     Dosage: UNK
     Dates: start: 20090801

REACTIONS (1)
  - DEEP VEIN THROMBOSIS [None]
